FAERS Safety Report 18391688 (Version 1)
Quarter: 2020Q4

REPORT INFORMATION
  Report Type: Spontaneous
  Country: BG (occurrence: BG)
  Receive Date: 20201016
  Receipt Date: 20201016
  Transmission Date: 20210114
  Serious: Yes (Death, Hospitalization, Other)
  Sender: FDA-Public Use
  Company Number: BG-ASTRAZENECA-2020SF32453

PATIENT
  Age: 66 Year
  Sex: Female

DRUGS (1)
  1. FASENRA [Suspect]
     Active Substance: BENRALIZUMAB
     Indication: ASTHMA
     Dosage: RECEIVED 3 DOSES OF FASENRA, RESPECTIVELY IN JUNE, JULY AND AUGUST 2020
     Route: 058

REACTIONS (2)
  - Pneumonia [Unknown]
  - Abdominal discomfort [Fatal]

NARRATIVE: CASE EVENT DATE: 20201008
